FAERS Safety Report 8810609 (Version 2)
Quarter: 2012Q4

REPORT INFORMATION
  Report Type: 
  Country: US (occurrence: US)
  Receive Date: 20120927
  Receipt Date: 20121105
  Transmission Date: 20130627
  Serious: No
  Sender: FDA-Public Use
  Company Number: US-BIOGENIDEC-2012BI040844

PATIENT
  Sex: Male

DRUGS (1)
  1. TYSABRI [Suspect]
     Indication: MULTIPLE SCLEROSIS
     Route: 042
     Dates: start: 20111213, end: 20120821

REACTIONS (8)
  - Cognitive disorder [Unknown]
  - Gait disturbance [Unknown]
  - Depression [Unknown]
  - Balance disorder [Unknown]
  - Quality of life decreased [Unknown]
  - Fatigue [Unknown]
  - Multiple sclerosis [Unknown]
  - Drug ineffective [Unknown]
